FAERS Safety Report 14596941 (Version 2)
Quarter: 2018Q4

REPORT INFORMATION
  Report Type: Report from Study
  Country: DE (occurrence: DE)
  Receive Date: 20180305
  Receipt Date: 20181016
  Transmission Date: 20190204
  Serious: Yes (Hospitalization)
  Sender: FDA-Public Use
  Company Number: DE-ROCHE-2077518

PATIENT
  Age: 60 Year
  Sex: Female

DRUGS (9)
  1. BEVACIZUMAB. [Suspect]
     Active Substance: BEVACIZUMAB
     Indication: OVARIAN CANCER
     Dosage: ON 05/MAY/2017, PATIENT RECEIVED LAST DOSE OF BEVACIZUMAB BEFORE THE EVENT.?22 CYCLES (INCLUDING COM
     Route: 042
     Dates: start: 20161117, end: 20170620
  2. VITAMIN B12 [Concomitant]
     Active Substance: CYANOCOBALAMIN
     Route: 048
  3. BEVACIZUMAB. [Suspect]
     Active Substance: BEVACIZUMAB
     Route: 042
     Dates: start: 20170728, end: 20171020
  4. METOPROLOL. [Concomitant]
     Active Substance: METOPROLOL
     Route: 048
  5. L THYROXINE [Concomitant]
     Active Substance: LEVOTHYROXINE SODIUM
     Route: 048
  6. HYDROCHLOROTHIAZIDE. [Concomitant]
     Active Substance: HYDROCHLOROTHIAZIDE
  7. OLAPARIB. [Suspect]
     Active Substance: OLAPARIB
     Indication: OVARIAN CANCER
     Dosage: ON AN UNSPECIFIED DATE, PATIENT RECEIVED LAST DOSE OF OLAPARIB BEFORE THE EVENT.
     Route: 048
     Dates: start: 20161118, end: 20170628
  8. BEVACIZUMAB. [Suspect]
     Active Substance: BEVACIZUMAB
     Route: 042
     Dates: start: 20170711
  9. OLAPARIB. [Suspect]
     Active Substance: OLAPARIB
     Dosage: 30/MAY/2017, PATIENT RECEIVED LAST DOSE OF OLAPARIB BEFORE THE EVENT
     Route: 048
     Dates: start: 20170711

REACTIONS (1)
  - Metastatic bronchial carcinoma [Not Recovered/Not Resolved]

NARRATIVE: CASE EVENT DATE: 20170531
